FAERS Safety Report 22594376 (Version 1)
Quarter: 2023Q2

REPORT INFORMATION
  Report Type: Spontaneous
  Country: ES (occurrence: ES)
  Receive Date: 20230613
  Receipt Date: 20230613
  Transmission Date: 20230722
  Serious: Yes (Life-Threatening, Hospitalization)
  Sender: FDA-Public Use
  Company Number: None

PATIENT
  Age: 42 Year
  Sex: Male

DRUGS (6)
  1. LAMOTRIGINE [Interacting]
     Active Substance: LAMOTRIGINE
     Indication: Suicidal ideation
     Dosage: 2000 MG (1 TOTAL) (20 COMPRIMIDOS DE 100 MG (SOBREINGESTA))
     Route: 048
     Dates: start: 20230517, end: 20230517
  2. ZOLPIDEM [Interacting]
     Active Substance: ZOLPIDEM TARTRATE
     Indication: Suicidal ideation
     Dosage: 100 MG (1 TOTAL) (10 COMPRIMIDOS)
     Route: 048
     Dates: start: 20230517, end: 20230517
  3. VENLAFAXINE HYDROCHLORIDE [Interacting]
     Active Substance: VENLAFAXINE HYDROCHLORIDE
     Indication: Suicidal ideation
     Dosage: 10 G (1 TOTAL) (SOBREINGESTA 40 COMPRIMIDOS)
     Route: 048
     Dates: start: 20230517, end: 20230517
  4. ZOLPIDEM [Concomitant]
     Active Substance: ZOLPIDEM TARTRATE
     Indication: Mixed anxiety and depressive disorder
     Dosage: 10 MG, Q24H
     Route: 048
  5. VENLAFAXINE HYDROCHLORIDE [Concomitant]
     Active Substance: VENLAFAXINE HYDROCHLORIDE
     Indication: Mixed anxiety and depressive disorder
     Dosage: 225 MG, Q24H
     Route: 048
  6. LAMOTRIGINE [Concomitant]
     Active Substance: LAMOTRIGINE
     Indication: Mixed anxiety and depressive disorder
     Dosage: 100 MG, Q24H
     Route: 048

REACTIONS (3)
  - Rhabdomyolysis [Recovering/Resolving]
  - Coma [Recovered/Resolved]
  - Pneumonia aspiration [Recovered/Resolved]

NARRATIVE: CASE EVENT DATE: 20230517
